FAERS Safety Report 24411148 (Version 1)
Quarter: 2024Q4

REPORT INFORMATION
  Report Type: Spontaneous
  Country: US (occurrence: US)
  Receive Date: 20241008
  Receipt Date: 20241008
  Transmission Date: 20250114
  Serious: No
  Sender: FERRING
  Company Number: US-FERRINGPH-2024FE03817

PATIENT
  Age: 72 Year
  Sex: Female

DRUGS (1)
  1. ADSTILADRIN [Suspect]
     Active Substance: NADOFARAGENE FIRADENOVEC-VNCG
     Indication: Product used for unknown indication
     Dosage: UNK
     Route: 065
     Dates: start: 20240628, end: 20240628

REACTIONS (4)
  - Genital discomfort [Recovered/Resolved]
  - Genital burning sensation [Recovered/Resolved]
  - Urethritis noninfective [Recovered/Resolved]
  - Dysuria [Recovered/Resolved]

NARRATIVE: CASE EVENT DATE: 20240101
